FAERS Safety Report 15388356 (Version 1)
Quarter: 2018Q3

REPORT INFORMATION
  Report Type: Spontaneous
  Country: US (occurrence: US)
  Receive Date: 20180915
  Receipt Date: 20180915
  Transmission Date: 20181010
  Serious: No
  Sender: FDA-Public Use
  Company Number: US-ASTRAZENECA-2018SF11258

PATIENT
  Age: 23799 Day
  Sex: Female
  Weight: 53.5 kg

DRUGS (4)
  1. BYDUREON BCISE [Suspect]
     Active Substance: EXENATIDE
     Indication: TYPE 2 DIABETES MELLITUS
     Route: 058
     Dates: start: 20180822
  2. JENTADUETO [Concomitant]
     Active Substance: LINAGLIPTIN\METFORMIN HYDROCHLORIDE
     Indication: BLOOD GLUCAGON ABNORMAL
     Dosage: 2.0DF UNKNOWN
     Route: 048
  3. HUMULIN R INSULIN [Concomitant]
     Indication: BLOOD GLUCAGON ABNORMAL
     Route: 058
     Dates: end: 20180822
  4. TRESIBA [Concomitant]
     Active Substance: INSULIN DEGLUDEC
     Indication: BLOOD GLUCAGON ABNORMAL
     Dosage: 100 UNITS A DAY
     Route: 058

REACTIONS (2)
  - Intentional product misuse [Unknown]
  - Injection site extravasation [Unknown]

NARRATIVE: CASE EVENT DATE: 20180829
